FAERS Safety Report 23726463 (Version 1)
Quarter: 2024Q2

REPORT INFORMATION
  Report Type: Spontaneous
  Country: DE (occurrence: DE)
  Receive Date: 20240410
  Receipt Date: 20240410
  Transmission Date: 20240716
  Serious: Yes (Hospitalization, Other)
  Sender: FDA-Public Use
  Company Number: DE-EMA-DD-20200316-banavalli_m-152533

PATIENT

DRUGS (19)
  1. CLOBAZAM [Suspect]
     Active Substance: CLOBAZAM
     Indication: Tuberous sclerosis complex
     Dosage: 2.5 MG, BID
     Route: 065
  2. LACOSAMIDE [Suspect]
     Active Substance: LACOSAMIDE
     Indication: Tuberous sclerosis complex
     Dosage: UNK
     Route: 065
  3. VIGABATRIN [Suspect]
     Active Substance: VIGABATRIN
     Indication: Partial seizures
     Route: 065
  4. TOPIRAMATE [Suspect]
     Active Substance: TOPIRAMATE
     Indication: Partial seizures
     Route: 065
  5. CARBAMAZEPINE [Suspect]
     Active Substance: CARBAMAZEPINE
     Indication: Partial seizures
     Route: 065
  6. SULTHIAME [Suspect]
     Active Substance: SULTHIAME
     Indication: Partial seizures
     Route: 065
  7. CANNABIDIOL [Suspect]
     Active Substance: CANNABIDIOL
     Indication: Tuberous sclerosis complex
     Dosage: 500 MG, QD (20.4 MG/KG/DAY)
     Route: 065
  8. CANNABIDIOL [Suspect]
     Active Substance: CANNABIDIOL
     Indication: Epilepsy
     Dosage: 200 MG, QD (9.3 MG/KG/DAY)
     Route: 065
  9. CANNABIDIOL [Suspect]
     Active Substance: CANNABIDIOL
     Dosage: UNK
     Route: 065
     Dates: start: 20180928, end: 201903
  10. ZONISAMIDE [Suspect]
     Active Substance: ZONISAMIDE
     Indication: Partial seizures
     Route: 065
  11. EVEROLIMUS [Suspect]
     Active Substance: EVEROLIMUS
     Indication: Epilepsy
     Dosage: 0.6 MG/KG, QD
     Route: 065
     Dates: start: 2018
  12. EVEROLIMUS [Suspect]
     Active Substance: EVEROLIMUS
     Dosage: 0.3 MG/KG, QD
     Route: 065
     Dates: start: 2018
  13. EVEROLIMUS [Suspect]
     Active Substance: EVEROLIMUS
     Dosage: 5 MG, QD
     Route: 048
     Dates: start: 20190928
  14. EVEROLIMUS [Suspect]
     Active Substance: EVEROLIMUS
     Dosage: 0.13 MG/KG, QD
     Route: 065
  15. EVEROLIMUS [Suspect]
     Active Substance: EVEROLIMUS
     Dosage: 0.15 MG/KG, QD
     Route: 065
     Dates: start: 201712
  16. LAMOTRIGINE [Suspect]
     Active Substance: LAMOTRIGINE
     Indication: Tuberous sclerosis complex
     Dosage: UNK
     Route: 065
  17. OXCARBAZEPINE [Suspect]
     Active Substance: OXCARBAZEPINE
     Indication: Partial seizures
     Route: 065
  18. VALPROATE [Suspect]
     Active Substance: VALPROIC ACID
     Indication: Partial seizures
     Route: 065
  19. PROPRANOLOL [Concomitant]
     Active Substance: PROPRANOLOL HYDROCHLORIDE
     Indication: Tuberous sclerosis complex
     Dosage: UNK
     Route: 065

REACTIONS (8)
  - Epilepsy [Unknown]
  - Drug ineffective [Unknown]
  - Tonic convulsion [Unknown]
  - Drug interaction [Recovered/Resolved]
  - Drug level increased [Not Recovered/Not Resolved]
  - Off label use [Not Recovered/Not Resolved]
  - Therapeutic product effective for unapproved indication [Recovered/Resolved]
  - Therapeutic product ineffective for unapproved indication [Not Recovered/Not Resolved]

NARRATIVE: CASE EVENT DATE: 20181027
